FAERS Safety Report 7759354-0 (Version None)
Quarter: 2011Q3

REPORT INFORMATION
  Report Type: 
  Country: None (occurrence: None)
  Receive Date: 20110919
  Receipt Date: 20110907
  Transmission Date: 20111222
  Serious: No
  Sender: FDA-Public Use
  Company Number: US-JNJFOC-20110905086

PATIENT
  Sex: Female

DRUGS (2)
  1. FENTANYL-100 [Suspect]
     Indication: FIBROMYALGIA
     Dosage: 100 UG/HR + 50 UG/HR = 150 UG/HR PATCHES, NDC NUMBERS: 0781-7244-55 AND 0781-7242-55
     Route: 062
  2. FENTANYL-100 [Suspect]
     Indication: PAIN
     Dosage: 100 UG/HR + 50 UG/HR = 150 UG/HR PATCHES, NDC NUMBERS: 0781-7244-55 AND 0781-7242-55
     Route: 062

REACTIONS (2)
  - WRONG TECHNIQUE IN DRUG USAGE PROCESS [None]
  - PRODUCT ADHESION ISSUE [None]
